FAERS Safety Report 25774586 (Version 2)
Quarter: 2025Q4

REPORT INFORMATION
  Report Type: Report from Study
  Country: US (occurrence: US)
  Receive Date: 20250908
  Receipt Date: 20251109
  Transmission Date: 20260117
  Serious: No
  Sender: ABBVIE
  Company Number: US-ABBVIE-6444945

PATIENT
  Age: 50 Year
  Sex: Male
  Weight: 117.93 kg

DRUGS (1)
  1. SKYRIZI [Suspect]
     Active Substance: RISANKIZUMAB-RZAA
     Indication: Psoriasis
     Dosage: FORM STRENGTH: 150 MG
     Route: 058
     Dates: start: 2024

REACTIONS (3)
  - Injection site discharge [Unknown]
  - Injection site haemorrhage [Recovered/Resolved]
  - Delayed delivery [Not Recovered/Not Resolved]

NARRATIVE: CASE EVENT DATE: 20250801
